FAERS Safety Report 4480866-X (Version None)
Quarter: 2004Q4

REPORT INFORMATION
  Report Type: 
  Country: None (occurrence: None)
  Receive Date: 20040923
  Receipt Date: 20040728
  Transmission Date: 20050328
  Serious: No
  Sender: FDA-Public Use
  Company Number: USA030741220

PATIENT
  Age: 77 Year
  Sex: Female
  Weight: 61 kg

DRUGS (7)
  1. FORTEO [Suspect]
     Indication: OSTEOPOROSIS
     Dosage: 20 UG DAY
     Dates: start: 20030225
  2. ACTOS [Concomitant]
  3. PREDNISONE [Concomitant]
  4. PREMARIN [Concomitant]
  5. NEURONTIN [Concomitant]
  6. LIPITOR [Concomitant]
  7. VITAMIN B-12 [Concomitant]

REACTIONS (3)
  - INJECTION SITE BURNING [None]
  - INJECTION SITE ERYTHEMA [None]
  - INJECTION SITE HAEMORRHAGE [None]
